FAERS Safety Report 7007390-4 (Version None)
Quarter: 2010Q3

REPORT INFORMATION
  Report Type: 
  Country: None (occurrence: None)
  Receive Date: 20100922
  Receipt Date: 20100910
  Transmission Date: 20110219
  Serious: Yes (Hospitalization, Other)
  Sender: FDA-Public Use
  Company Number: US-PFIZER INC-2008008642

PATIENT
  Sex: Female
  Weight: 172 kg

DRUGS (6)
  1. DILANTIN [Suspect]
     Indication: EPILEPSY
     Dosage: 100 MG, 4X/DAY
  2. PHENOBARBITAL [Suspect]
     Indication: EPILEPSY
     Dosage: UNK
  3. MEPHENESIN [Suspect]
     Indication: EPILEPSY
  4. FAMOTIDINE [Concomitant]
  5. ONE-A-DAY [Concomitant]
  6. VALIUM [Concomitant]
     Indication: CONVULSION
     Dosage: 5 MG, 1X/DAY

REACTIONS (4)
  - CEREBROVASCULAR ACCIDENT [None]
  - CONVULSION [None]
  - HYPERSENSITIVITY [None]
  - HYPERTENSION [None]
